FAERS Safety Report 11037542 (Version 2)
Quarter: 2015Q2

REPORT INFORMATION
  Report Type: Report from Study
  Country: US (occurrence: US)
  Receive Date: 20150416
  Receipt Date: 20150416
  Transmission Date: 20150821
  Serious: Yes (Hospitalization)
  Sender: FDA-Public Use
  Company Number: PHEH2015US006284

PATIENT
  Sex: Male
  Weight: 94.8 kg

DRUGS (4)
  1. CLOZARIL [Suspect]
     Active Substance: CLOZAPINE
     Indication: SCHIZOPHRENIA
     Dosage: 50 MG, BID
     Route: 048
  2. CLOZAPINE. [Suspect]
     Active Substance: CLOZAPINE
     Indication: PRODUCT USED FOR UNKNOWN INDICATION
     Dosage: UNK
     Route: 065
  3. ASPIRIN. [Concomitant]
     Active Substance: ASPIRIN
     Indication: PRODUCT USED FOR UNKNOWN INDICATION
     Route: 065
  4. STATIN [Concomitant]
     Active Substance: UNSPECIFIED INGREDIENT
     Indication: PRODUCT USED FOR UNKNOWN INDICATION
     Route: 065

REACTIONS (16)
  - Lipase increased [Unknown]
  - Hyperkalaemia [Unknown]
  - Hypoxia [Unknown]
  - Vomiting [Unknown]
  - Pneumonia aspiration [Unknown]
  - Sedation [Unknown]
  - Gastrooesophageal reflux disease [Unknown]
  - Dyspnoea [Unknown]
  - Depressed level of consciousness [Recovering/Resolving]
  - Blood glucose increased [Recovering/Resolving]
  - Acidosis [Unknown]
  - Haematemesis [Unknown]
  - Unresponsive to stimuli [Unknown]
  - Diabetic ketoacidosis [Unknown]
  - Pulseless electrical activity [Unknown]
  - Blood pressure decreased [Unknown]
